FAERS Safety Report 18176681 (Version 4)
Quarter: 2022Q1

REPORT INFORMATION
  Report Type: Report from Study
  Country: CA (occurrence: CA)
  Receive Date: 20200820
  Receipt Date: 20220131
  Transmission Date: 20220423
  Serious: Yes (Other)
  Sender: FDA-Public Use
  Company Number: CA-JNJFOC-20200819752

PATIENT
  Age: 71 Year
  Sex: Male
  Weight: 86 kg

DRUGS (7)
  1. REMICADE [Suspect]
     Active Substance: INFLIXIMAB
     Indication: Rheumatoid arthritis
     Dosage: ON 25-JUN-2020, THE PATIENT RECEIVED INFLIXIMAB RECOMBINANT.
     Route: 042
     Dates: start: 20160614, end: 20200810
  2. REMICADE [Suspect]
     Active Substance: INFLIXIMAB
     Dosage: DOSING IS 4.3 MG/KG (400MG) AT WEEKS 0,2,6 THEN EVERY 8 WEEKS
     Route: 042
  3. METHOTREXATE [Concomitant]
     Active Substance: METHOTREXATE
     Indication: Rheumatoid arthritis
     Route: 065
     Dates: start: 20190926
  4. FOLIC ACID [Concomitant]
     Active Substance: FOLIC ACID
     Indication: Product used for unknown indication
     Route: 048
     Dates: start: 20200625
  5. CENTRUM VITAMINTS [Concomitant]
     Indication: Product used for unknown indication
     Route: 065
  6. ERGOCALCIFEROL [Concomitant]
     Active Substance: ERGOCALCIFEROL
     Indication: Product used for unknown indication
     Route: 065
  7. PREDNISONE [Concomitant]
     Active Substance: PREDNISONE
     Indication: Rheumatoid arthritis
     Dosage: 2.5 MG TO 20 MG DAILY.
     Route: 048
     Dates: start: 201506, end: 201701

REACTIONS (3)
  - Tonsil cancer [Not Recovered/Not Resolved]
  - Metastases to lymph nodes [Unknown]
  - Pulmonary mass [Unknown]

NARRATIVE: CASE EVENT DATE: 20191101
